FAERS Safety Report 8031782-8 (Version None)
Quarter: 2012Q1

REPORT INFORMATION
  Report Type: 
  Country: None (occurrence: None)
  Receive Date: 20120109
  Receipt Date: 20111230
  Transmission Date: 20120608
  Serious: Yes (Hospitalization)
  Sender: FDA-Public Use
  Company Number: US-ASTRAZENECA-2011SE47431

PATIENT
  Age: 22797 Day
  Sex: Female
  Weight: 59.9 kg

DRUGS (7)
  1. CELEXA [Concomitant]
  2. METOPROLOL SUCCINATE EXTENDED RELEASE [Concomitant]
  3. ATACAND HCT [Suspect]
     Indication: HYPERTENSION
     Route: 048
     Dates: start: 20090723
  4. ASPIRIN [Concomitant]
  5. RISPERIDONE [Concomitant]
  6. METOCLOPRAMIDE [Concomitant]
  7. CADUET [Suspect]
     Indication: HYPERLIPIDAEMIA
     Route: 048
     Dates: start: 20090723

REACTIONS (3)
  - PHOTOSENSITIVITY REACTION [None]
  - HYPERTENSION [None]
  - HEADACHE [None]
